FAERS Safety Report 13932737 (Version 1)
Quarter: 2017Q3

REPORT INFORMATION
  Report Type: Spontaneous
  Country: US (occurrence: US)
  Receive Date: 20170904
  Receipt Date: 20170904
  Transmission Date: 20171127
  Serious: No
  Sender: FDA-Public Use
  Company Number: US-ACI HEALTHCARE LIMITED-2025521

PATIENT
  Age: 58 Year
  Sex: Female
  Weight: 105.91 kg

DRUGS (8)
  1. GABAPENTIN. [Suspect]
     Active Substance: GABAPENTIN
     Indication: BACK PAIN
     Route: 048
     Dates: start: 201310, end: 2016
  2. NORTRIPTYLINE [Concomitant]
     Active Substance: NORTRIPTYLINE
     Route: 065
  3. DARIFENACIN ER [Concomitant]
     Route: 065
  4. MAGNESIUM OXIDE. [Concomitant]
     Active Substance: MAGNESIUM OXIDE
     Route: 065
  5. GABAPENTIN. [Suspect]
     Active Substance: GABAPENTIN
     Indication: PARAESTHESIA
     Route: 048
     Dates: start: 201310, end: 2016
  6. CALCIUM [Concomitant]
     Active Substance: CALCIUM
     Route: 065
  7. WARFARIN [Concomitant]
     Active Substance: WARFARIN
     Route: 065
  8. VITAMIN D3 [Concomitant]
     Active Substance: CHOLECALCIFEROL
     Route: 065

REACTIONS (6)
  - Off label use [Recovered/Resolved]
  - Dysphemia [Recovered/Resolved]
  - Muscle spasms [Recovered/Resolved]
  - Aphasia [Recovered/Resolved]
  - Blood magnesium decreased [Recovered/Resolved]
  - Breakthrough pain [Unknown]

NARRATIVE: CASE EVENT DATE: 201310
